FAERS Safety Report 7121533-3 (Version None)
Quarter: 2010Q4

REPORT INFORMATION
  Report Type: 
  Country: None (occurrence: None)
  Receive Date: 20101124
  Receipt Date: 20101112
  Transmission Date: 20110411
  Serious: Yes (Other)
  Sender: FDA-Public Use
  Company Number: US-RB-015376-10

PATIENT
  Sex: Male

DRUGS (1)
  1. MUCINEX [Suspect]
     Dosage: PATIENT INGESTED ABOUT 20 TABLETS
     Route: 048

REACTIONS (3)
  - DRUG ABUSE [None]
  - NO ADVERSE EVENT [None]
  - OVERDOSE [None]
